FAERS Safety Report 5592183-5 (Version None)
Quarter: 2008Q1

REPORT INFORMATION
  Report Type: 
  Country: None (occurrence: None)
  Receive Date: 20080115
  Receipt Date: 20070725
  Transmission Date: 20080703
  Serious: No
  Sender: FDA-Public Use
  Company Number: US-ABBOTT-07P-163-0406514-00

PATIENT
  Sex: Female

DRUGS (1)
  1. ADVICOR [Suspect]
     Indication: DRUG USE FOR UNKNOWN INDICATION
     Route: 048
     Dates: start: 20070720

REACTIONS (2)
  - DIZZINESS [None]
  - NAUSEA [None]
